FAERS Safety Report 21943712 (Version 1)
Quarter: 2023Q1

REPORT INFORMATION
  Report Type: Spontaneous
  Country: US (occurrence: None)
  Receive Date: 20230201
  Receipt Date: 20230201
  Transmission Date: 20230418
  Serious: Yes (Hospitalization)
  Sender: FDA-Public Use
  Company Number: None

PATIENT
  Age: 39 Year
  Sex: Male
  Weight: 138.7 kg

DRUGS (1)
  1. CISPLATIN [Suspect]
     Active Substance: CISPLATIN
     Dates: end: 20230123

REACTIONS (5)
  - Hypotension [None]
  - Tachycardia [None]
  - Hypophagia [None]
  - Chromaturia [None]
  - Acute kidney injury [None]

NARRATIVE: CASE EVENT DATE: 20230130
